FAERS Safety Report 18004556 (Version 1)
Quarter: 2020Q3

REPORT INFORMATION
  Report Type: Spontaneous
  Country: CN (occurrence: CN)
  Receive Date: 20200709
  Receipt Date: 20200709
  Transmission Date: 20201103
  Serious: Yes (Hospitalization)
  Sender: FDA-Public Use
  Company Number: CN-JNJFOC-20200702884

PATIENT
  Age: 70 Year
  Sex: Female
  Weight: 73 kg

DRUGS (2)
  1. XARELTO [Suspect]
     Active Substance: RIVAROXABAN
     Indication: VENOUS THROMBOSIS LIMB
     Dosage: 20 MG, QD
     Route: 048
     Dates: start: 20200416, end: 20200615
  2. CELECOXIB. [Concomitant]
     Active Substance: CELECOXIB
     Indication: PAIN
     Dosage: 0.2 G, BID
     Route: 048
     Dates: start: 20200611, end: 20200614

REACTIONS (7)
  - Ecchymosis [Recovering/Resolving]
  - Dyspnoea [Unknown]
  - Product prescribing issue [Unknown]
  - Cough [Unknown]
  - Faeces discoloured [Unknown]
  - Haemorrhage [Recovered/Resolved]
  - Wheezing [Unknown]

NARRATIVE: CASE EVENT DATE: 20200416
